FAERS Safety Report 17072286 (Version 1)
Quarter: 2019Q4

REPORT INFORMATION
  Report Type: Spontaneous
  Country: CN (occurrence: CN)
  Receive Date: 20191125
  Receipt Date: 20191125
  Transmission Date: 20200122
  Serious: Yes (Life-Threatening, Hospitalization, Other)
  Sender: FDA-Public Use
  Company Number: CN-009507513-1911CHN009001

PATIENT
  Age: 46 Year
  Sex: Male
  Weight: 67 kg

DRUGS (1)
  1. KEYTRUDA [Suspect]
     Active Substance: PEMBROLIZUMAB
     Indication: SQUAMOUS CELL CARCINOMA OF LUNG
     Dosage: 8 TIMES, 200 MILLIGRAM, QD
     Route: 041
     Dates: start: 20190304, end: 20190905

REACTIONS (4)
  - Pneumonia [Recovering/Resolving]
  - Malignant neoplasm progression [Unknown]
  - Product use issue [Unknown]
  - Respiratory failure [Recovering/Resolving]

NARRATIVE: CASE EVENT DATE: 2019
